FAERS Safety Report 9667652 (Version 1)
Quarter: 2013Q4

REPORT INFORMATION
  Report Type: Spontaneous
  Country: US (occurrence: US)
  Receive Date: 20131101
  Receipt Date: 20131101
  Transmission Date: 20140711
  Serious: No
  Sender: FDA-Public Use
  Company Number: US-SAVIENT-2012S1000084

PATIENT
  Age: 80 Year
  Sex: Female
  Weight: 65.32 kg

DRUGS (24)
  1. KRYSTEXXA INJECTION [Suspect]
     Indication: GOUT
     Route: 042
     Dates: start: 20120612, end: 20120612
  2. KRYSTEXXA INJECTION [Suspect]
     Indication: GOUT
     Route: 042
     Dates: start: 20120731, end: 20120731
  3. BENADRYL  /00000402/ [Concomitant]
     Indication: PREMEDICATION
     Route: 048
     Dates: start: 20120612, end: 20120612
  4. BENADRYL  /00000402/ [Concomitant]
     Indication: PREMEDICATION
     Route: 048
     Dates: start: 20120731, end: 20120731
  5. TYLENOL /00020001/ [Concomitant]
     Indication: PREMEDICATION
     Route: 048
     Dates: start: 20120612, end: 20120612
  6. TYLENOL /00020001/ [Concomitant]
     Indication: PREMEDICATION
     Route: 048
     Dates: start: 20120731, end: 20120731
  7. SOLU-CORTEF [Concomitant]
     Indication: PREMEDICATION
     Route: 042
     Dates: start: 20120612, end: 20120612
  8. SOLU-CORTEF [Concomitant]
     Indication: PREMEDICATION
     Route: 042
     Dates: start: 20120731, end: 20120731
  9. LISINOPRIL [Concomitant]
     Indication: PULMONARY HYPERTENSION
  10. FUROSEMIDE [Concomitant]
     Indication: PULMONARY HYPERTENSION
  11. LEVOTHYROXINE [Concomitant]
     Indication: HYPOTHYROIDISM
     Dosage: DOSE UNIT:75
  12. DIGOXIN [Concomitant]
     Indication: CARDIAC FAILURE CONGESTIVE
  13. HYDROCODONE BITARTRATE AND ACETAMINOPHEN [Concomitant]
     Indication: PAIN
  14. LOSARTAN [Concomitant]
     Indication: PULMONARY HYPERTENSION
  15. LABETALOL [Concomitant]
     Indication: PULMONARY HYPERTENSION
  16. ANADROL [Concomitant]
     Indication: PRODUCT USED FOR UNKNOWN INDICATION
  17. FISH OIL [Concomitant]
     Indication: NUTRITIONAL SUPPLEMENTATION
  18. MULTIVITAMIN /00097801/ [Concomitant]
     Indication: NUTRITIONAL SUPPLEMENTATION
  19. ALL OTHER THERAPEUTIC PRODUCTS [Concomitant]
     Indication: NUTRITIONAL SUPPLEMENTATION
  20. VITAMIN C /00008001/ [Concomitant]
     Indication: NUTRITIONAL SUPPLEMENTATION
  21. VITAMIN D /00107901/ [Concomitant]
     Indication: NUTRITIONAL SUPPLEMENTATION
  22. TYLENOL ARTHRITIS [Concomitant]
     Indication: ARTHRALGIA
  23. FOLIC ACID [Concomitant]
     Indication: NUTRITIONAL SUPPLEMENTATION
  24. ALLOPURINOL [Concomitant]
     Indication: GOUT
     Dates: end: 201207

REACTIONS (1)
  - Burning sensation [Recovered/Resolved]
